FAERS Safety Report 6018909-4 (Version None)
Quarter: 2008Q4

REPORT INFORMATION
  Report Type: 
  Country: None (occurrence: None)
  Receive Date: 20081221
  Receipt Date: 20081221
  Transmission Date: 20090506
  Serious: Yes (Hospitalization)
  Sender: FDA-Public Use
  Company Number: None

PATIENT
  Sex: Female
  Weight: 63.5 kg

DRUGS (7)
  1. FLUOROURACIL [Suspect]
     Dosage: 4702 MG
     Dates: end: 20081204
  2. LEUCOVORIN CALCIUM [Suspect]
     Dosage: 672 MG
     Dates: end: 20081204
  3. ELOXATIN [Suspect]
     Dosage: 143 MG
     Dates: end: 20081204
  4. ACTOS [Concomitant]
  5. GLIPIZIDE [Concomitant]
  6. METOPROLOL [Concomitant]
  7. POTASSIUM CHLORIDE [Concomitant]

REACTIONS (15)
  - BLOOD CREATININE INCREASED [None]
  - BLOOD SODIUM DECREASED [None]
  - BLOOD UREA INCREASED [None]
  - DIARRHOEA [None]
  - DYSPHAGIA [None]
  - ERYTHEMA [None]
  - FLUID INTAKE REDUCED [None]
  - HYPERGLYCAEMIA [None]
  - HYPOPHAGIA [None]
  - MOUTH ULCERATION [None]
  - NAUSEA [None]
  - PALMAR-PLANTAR ERYTHRODYSAESTHESIA SYNDROME [None]
  - PHARYNGEAL ULCERATION [None]
  - STOMATITIS [None]
  - TENDERNESS [None]
